FAERS Safety Report 11730215 (Version 1)
Quarter: 2015Q4

REPORT INFORMATION
  Report Type: Spontaneous
  Country: US (occurrence: US)
  Receive Date: 20151112
  Receipt Date: 20151112
  Transmission Date: 20160304
  Serious: Yes (Other)
  Sender: FDA-Public Use
  Company Number: US-GLAXOSMITHKLINE-US2015158929

PATIENT
  Age: 56 Year
  Sex: Female

DRUGS (3)
  1. KLONOPIN [Concomitant]
     Active Substance: CLONAZEPAM
  2. MARINOL [Concomitant]
     Active Substance: DRONABINOL
  3. BENLYSTA [Suspect]
     Active Substance: BELIMUMAB
     Indication: SYSTEMIC LUPUS ERYTHEMATOSUS
     Dosage: UNK, U
     Route: 042
     Dates: start: 20151102

REACTIONS (14)
  - Dizziness [Recovering/Resolving]
  - Hyperhidrosis [Recovered/Resolved]
  - Feeling abnormal [Recovered/Resolved]
  - Blood pressure increased [Unknown]
  - Blood blister [Not Recovered/Not Resolved]
  - Pain in jaw [Recovered/Resolved]
  - Fatigue [Recovered/Resolved]
  - Feeling jittery [Recovering/Resolving]
  - Insomnia [Recovered/Resolved]
  - Palpitations [Recovering/Resolving]
  - Anxiety [Recovering/Resolving]
  - Mental impairment [Recovered/Resolved]
  - Erythema [Unknown]
  - Migraine [Recovering/Resolving]

NARRATIVE: CASE EVENT DATE: 20151102
